FAERS Safety Report 9511718 (Version 2)
Quarter: 2013Q4

REPORT INFORMATION
  Report Type: Spontaneous
  Country: US (occurrence: US)
  Receive Date: 20130910
  Receipt Date: 20131003
  Transmission Date: 20140711
  Serious: Yes (Hospitalization, Other)
  Sender: FDA-Public Use
  Company Number: US-TEVA-430607USA

PATIENT
  Sex: Female

DRUGS (8)
  1. CLARAVIS [Suspect]
     Indication: ACNE
     Dosage: 88 MG/KG/D
     Route: 048
     Dates: start: 20120621, end: 201210
  2. PRO-AIR [Concomitant]
  3. LORAZEPAM [Concomitant]
  4. CALCIUM [Concomitant]
  5. MAGNESIUM [Concomitant]
  6. CONVALLARIA MAJALIS\CRATAEGUS LAEVIGATA LEAF\PROXYPHYLLINE [Concomitant]
  7. VITAMIN D [Concomitant]
  8. VITAMIN B6 [Concomitant]

REACTIONS (5)
  - Colon cancer [Unknown]
  - Colon cancer metastatic [Unknown]
  - Acquired gene mutation [Unknown]
  - Appendix disorder [Unknown]
  - Neuropathy peripheral [Unknown]
